FAERS Safety Report 8908788 (Version 1)
Quarter: 2012Q4

REPORT INFORMATION
  Report Type: 
  Country: FR (occurrence: FR)
  Receive Date: 20121114
  Receipt Date: 20121114
  Transmission Date: 20130627
  Serious: Yes (Hospitalization)
  Sender: FDA-Public Use
  Company Number: FR-ROCHE-1152630

PATIENT
  Age: 32 Year
  Sex: Male

DRUGS (13)
  1. CELLCEPT [Suspect]
     Indication: PRODUCT USED FOR UNKNOWN INDICATION
     Route: 048
     Dates: start: 200407, end: 200808
  2. TYSABRI [Suspect]
     Indication: PRODUCT USED FOR UNKNOWN INDICATION
     Dosage: Total dose of 50 or 51 infusions
     Route: 042
     Dates: start: 20080825, end: 201208
  3. IMUREL [Suspect]
     Indication: PRODUCT USED FOR UNKNOWN INDICATION
     Route: 048
     Dates: start: 200401, end: 200407
  4. MITOXANTRONE [Suspect]
     Indication: PRODUCT USED FOR UNKNOWN INDICATION
     Dosage: cumulative dose at 120 mg
     Route: 048
     Dates: end: 200312
  5. BACLOFENE [Concomitant]
  6. LYRICA [Concomitant]
  7. ANAFRANIL [Concomitant]
  8. MANTADIX [Concomitant]
  9. FURADANTINE [Concomitant]
  10. BACTRIM FORTE [Concomitant]
  11. FORLAX (FRANCE) [Concomitant]
  12. HYPERIUM [Concomitant]
  13. TARKA [Concomitant]

REACTIONS (1)
  - Renal cancer [Not Recovered/Not Resolved]
